FAERS Safety Report 14202822 (Version 1)
Quarter: 2017Q4

REPORT INFORMATION
  Report Type: Spontaneous
  Country: US (occurrence: US)
  Receive Date: 20171119
  Receipt Date: 20171119
  Transmission Date: 20180321
  Serious: No
  Sender: FDA-Public Use
  Company Number: US-DUSA PHARMACEUTICALS, INC.-2034594

PATIENT
  Age: 77 Year
  Sex: Male

DRUGS (1)
  1. LEVULAN KERASTICK [Suspect]
     Active Substance: AMINOLEVULINIC ACID HYDROCHLORIDE
     Route: 061
     Dates: start: 20161229, end: 20161229

REACTIONS (4)
  - Lacrimation increased [Recovering/Resolving]
  - Periorbital disorder [Recovering/Resolving]
  - Dry eye [Recovering/Resolving]
  - Burning sensation [None]

NARRATIVE: CASE EVENT DATE: 20161230
